FAERS Safety Report 5670224-4 (Version None)
Quarter: 2008Q1

REPORT INFORMATION
  Report Type: 
  Country: None (occurrence: None)
  Receive Date: 20080314
  Receipt Date: 20080314
  Transmission Date: 20080703
  Serious: No
  Sender: FDA-Public Use
  Company Number: None

PATIENT
  Sex: Female
  Weight: 50 kg

DRUGS (1)
  1. LIPOSYN III 20% [Suspect]
     Indication: SMALL INTESTINAL OBSTRUCTION
     Dosage: 180 ML OVER 12 HRS DAILY IV
     Route: 042
     Dates: start: 20080227

REACTIONS (3)
  - INFUSION RELATED REACTION [None]
  - PRURITUS [None]
  - URTICARIA [None]
